FAERS Safety Report 18113109 (Version 1)
Quarter: 2020Q3

REPORT INFORMATION
  Report Type: Spontaneous
  Country: US (occurrence: US)
  Receive Date: 20200805
  Receipt Date: 20200805
  Transmission Date: 20201103
  Serious: No
  Sender: FDA-Public Use
  Company Number: US-MYLANLABS-2020M1069092

PATIENT
  Sex: Female
  Weight: 95 kg

DRUGS (1)
  1. NORETHINDRONE ACETATE TABLETS USP [Suspect]
     Active Substance: NORETHINDRONE ACETATE
     Indication: PRODUCT USED FOR UNKNOWN INDICATION
     Dosage: 5 MILLIGRAM, TID
     Route: 048
     Dates: start: 20200214

REACTIONS (1)
  - Migraine [Not Recovered/Not Resolved]
